FAERS Safety Report 16200546 (Version 1)
Quarter: 2019Q2

REPORT INFORMATION
  Report Type: Spontaneous
  Country: DE (occurrence: DE)
  Receive Date: 20190416
  Receipt Date: 20190416
  Transmission Date: 20190711
  Serious: No
  Sender: FDA-Public Use
  Company Number: DE-LUPIN PHARMACEUTICALS INC.-2018-02272

PATIENT
  Age: 57 Year
  Sex: Female

DRUGS (5)
  1. RIFAMPIN. [Interacting]
     Active Substance: RIFAMPIN
     Dosage: 600 MG, BID
     Route: 042
  2. PHENPROCOUMON [Interacting]
     Active Substance: PHENPROCOUMON
     Indication: ANTICOAGULANT THERAPY
     Dosage: 3 MG, QD
     Route: 065
  3. RIFAMPIN. [Suspect]
     Active Substance: RIFAMPIN
     Indication: ENDOCARDITIS
     Dosage: UNK
     Route: 065
  4. VANCOMYCIN [Concomitant]
     Active Substance: VANCOMYCIN
     Indication: ENDOCARDITIS
     Dosage: UNK
     Route: 065
  5. GENTAMICIN. [Concomitant]
     Active Substance: GENTAMICIN
     Indication: ENDOCARDITIS
     Dosage: UNK
     Route: 065

REACTIONS (2)
  - International normalised ratio decreased [Recovered/Resolved]
  - Drug interaction [Unknown]
